FAERS Safety Report 8376937-8 (Version None)
Quarter: 2012Q2

REPORT INFORMATION
  Report Type: 
  Country: None (occurrence: None)
  Receive Date: 20120521
  Receipt Date: 20120504
  Transmission Date: 20120825
  Serious: Yes (Hospitalization)
  Sender: FDA-Public Use
  Company Number: 2012-2138

PATIENT
  Age: 16 Year
  Sex: Male

DRUGS (4)
  1. NUTROPIN AQ 5 MG/ML (NUTROPIN) (SOMATROPIN) (SOMATROPIN) [Concomitant]
  2. INCRELEX [Suspect]
     Indication: BODY HEIGHT BELOW NORMAL
     Dosage: 34 UNITS (17 UNITS, 2 IN 1 D), SUBCUTANEOUS
     Route: 058
     Dates: start: 20110519, end: 20120425
  3. INCRELEX [Suspect]
     Indication: OFF LABEL USE
     Dosage: 34 UNITS (17 UNITS, 2 IN 1 D), SUBCUTANEOUS
     Route: 058
     Dates: start: 20110519, end: 20120425
  4. INCRELEX [Suspect]
     Indication: FAILURE TO THRIVE
     Dosage: 34 UNITS (17 UNITS, 2 IN 1 D), SUBCUTANEOUS
     Route: 058
     Dates: start: 20110519, end: 20120425

REACTIONS (4)
  - FOREARM FRACTURE [None]
  - ANKLE FRACTURE [None]
  - FALL [None]
  - WRIST FRACTURE [None]
